FAERS Safety Report 8818652 (Version 2)
Quarter: 2012Q4

REPORT INFORMATION
  Report Type: 
  Country: IN (occurrence: IN)
  Receive Date: 20121001
  Receipt Date: 20121003
  Transmission Date: 20130627
  Serious: Yes (Death)
  Sender: FDA-Public Use
  Company Number: PHHY2012IN085048

PATIENT
  Age: 60 Year
  Sex: Male

DRUGS (2)
  1. SEBIVO [Suspect]
     Indication: HEPATITIS B
     Dosage: 600 mg/day
     Dates: start: 20120724
  2. SEBIVO [Suspect]
     Indication: HEPATITIS C

REACTIONS (1)
  - Death [Fatal]
